FAERS Safety Report 11398846 (Version 1)
Quarter: 2015Q3

REPORT INFORMATION
  Report Type: Spontaneous
  Country: US (occurrence: None)
  Receive Date: 20150818
  Receipt Date: 20150818
  Transmission Date: 20151125
  Serious: Yes (Hospitalization, Other)
  Sender: FDA-Public Use
  Company Number: None

PATIENT
  Age: 52 Year
  Sex: Male
  Weight: 63 kg

DRUGS (22)
  1. MAGNESIUM SULFATE. [Concomitant]
     Active Substance: MAGNESIUM SULFATE
  2. VALGANCICLOVIR [Concomitant]
     Active Substance: VALGANCICLOVIR
  3. CALCITRIOL. [Concomitant]
     Active Substance: CALCITRIOL
  4. MYCOPHENOLATE MOFETIL. [Concomitant]
     Active Substance: MYCOPHENOLATE MOFETIL
  5. RITUXIMAB [Concomitant]
     Active Substance: RITUXIMAB
  6. AMLODIPINE [Concomitant]
     Active Substance: AMLODIPINE BESYLATE
  7. CALCIUM CARBONATE. [Concomitant]
     Active Substance: CALCIUM CARBONATE
  8. CLONIDINE. [Concomitant]
     Active Substance: CLONIDINE
  9. PROCALCIFEROL [Concomitant]
  10. TACROLIMUS. [Concomitant]
     Active Substance: TACROLIMUS
  11. GANCICLOVIR. [Concomitant]
     Active Substance: GANCICLOVIR
  12. PRIVIGEN [Suspect]
     Active Substance: HUMAN IMMUNOGLOBULIN G
     Indication: RENAL TRANSPLANT
     Route: 042
     Dates: start: 20150610, end: 20150619
  13. CIPROFLOXACIN. [Concomitant]
     Active Substance: CIPROFLOXACIN
  14. MAGNESIUM OXIDE. [Concomitant]
     Active Substance: MAGNESIUM OXIDE
  15. ALBUMIN [Concomitant]
     Active Substance: ALBUMIN (HUMAN)
  16. ECULIZUMAB [Concomitant]
     Active Substance: ECULIZUMAB
  17. ANTI-THYMOCYTE GLOBULION (RABBIT) [Concomitant]
  18. PIPERACILLIN AND TAZOBACTAM [Concomitant]
     Active Substance: PIPERACILLIN SODIUM\TAZOBACTAM SODIUM
  19. PREDNISONE. [Concomitant]
     Active Substance: PREDNISONE
  20. VANCOMYCIN [Concomitant]
     Active Substance: VANCOMYCIN
  21. FOLIC ACID. [Concomitant]
     Active Substance: FOLIC ACID
  22. PANTOPRAZOLE [Concomitant]
     Active Substance: PANTOPRAZOLE SODIUM

REACTIONS (1)
  - Kidney transplant rejection [None]

NARRATIVE: CASE EVENT DATE: 20150616
